FAERS Safety Report 12808715 (Version 1)
Quarter: 2016Q4

REPORT INFORMATION
  Report Type: Spontaneous
  Country: JP (occurrence: JP)
  Receive Date: 20161004
  Receipt Date: 20161004
  Transmission Date: 20170207
  Serious: Yes (Hospitalization)
  Sender: FDA-Public Use
  Company Number: JP-PFIZER INC-2016464045

PATIENT
  Age: 80 Year
  Sex: Male

DRUGS (6)
  1. ALLORIN [Concomitant]
     Route: 048
  2. LASIX [Concomitant]
     Active Substance: FUROSEMIDE
     Route: 048
  3. HALFDIGOXIN [Suspect]
     Active Substance: DIGOXIN
     Route: 048
  4. ALDACTONE A [Suspect]
     Active Substance: SPIRONOLACTONE
     Route: 048
  5. BAYASPIRIN [Concomitant]
     Active Substance: ASPIRIN
     Route: 048
  6. WARFARIN /00014803/ [Concomitant]
     Active Substance: WARFARIN
     Route: 048

REACTIONS (2)
  - Angiokeratoma [Unknown]
  - Gynaecomastia [Unknown]
